FAERS Safety Report 10857867 (Version 3)
Quarter: 2015Q3

REPORT INFORMATION
  Report Type: Report from Study
  Country: US (occurrence: US)
  Receive Date: 20150223
  Receipt Date: 20150819
  Transmission Date: 20151125
  Serious: No
  Sender: FDA-Public Use
  Company Number: US-GILEAD-2015-0138437

PATIENT
  Age: 42 Year
  Sex: Male

DRUGS (4)
  1. REVATIO [Concomitant]
     Active Substance: SILDENAFIL CITRATE
  2. ORENITRAM [Concomitant]
     Active Substance: TREPROSTINIL
  3. SILDENAFIL. [Concomitant]
     Active Substance: SILDENAFIL
  4. AMBRISENTAN [Suspect]
     Active Substance: AMBRISENTAN
     Indication: PRODUCT USED FOR UNKNOWN INDICATION
     Dosage: 10 MG, QD
     Route: 065
     Dates: start: 20110427

REACTIONS (9)
  - Weight increased [Unknown]
  - Pain [Unknown]
  - Headache [Unknown]
  - Faeces soft [Unknown]
  - Pain in extremity [Unknown]
  - Increased appetite [Unknown]
  - Diarrhoea [Unknown]
  - Pain in jaw [Unknown]
  - Cervicogenic headache [Unknown]
